FAERS Safety Report 20258110 (Version 2)
Quarter: 2022Q1

REPORT INFORMATION
  Report Type: Spontaneous
  Country: CN (occurrence: None)
  Receive Date: 20211230
  Receipt Date: 20220106
  Transmission Date: 20220423
  Serious: Yes (Other)
  Sender: FDA-Public Use
  Company Number: 2021A882662

PATIENT
  Sex: Male

DRUGS (3)
  1. IMFINZI [Suspect]
     Active Substance: DURVALUMAB
     Indication: Small cell lung cancer
     Dosage: TWO VIALS OF 500MG/10ML, PLUS EP SCHEME FOR 4 CYCLES
     Route: 041
  2. ETOPOSIDE [Concomitant]
     Active Substance: ETOPOSIDE
     Dosage: ACCORDING TO THE CYCLE
  3. CARBOPLATIN [Concomitant]
     Active Substance: CARBOPLATIN
     Dosage: ACCORDING TO THE CYCLE

REACTIONS (2)
  - Feeding disorder [Not Recovered/Not Resolved]
  - Pruritus [Not Recovered/Not Resolved]
